FAERS Safety Report 16276650 (Version 1)
Quarter: 2019Q2

REPORT INFORMATION
  Report Type: Spontaneous
  Country: US (occurrence: US)
  Receive Date: 20190506
  Receipt Date: 20190506
  Transmission Date: 20190711
  Serious: No
  Sender: FDA-Public Use
  Company Number: US-PFIZER INC-2016510249

PATIENT
  Age: 55 Year
  Sex: Male

DRUGS (14)
  1. VIAGRA [Suspect]
     Active Substance: SILDENAFIL CITRATE
     Indication: ERECTILE DYSFUNCTION
     Dosage: 100 MG, DAILY AS NEEDED
     Route: 048
  2. NORVASC [Suspect]
     Active Substance: AMLODIPINE BESYLATE
     Dosage: 10 MG, DAILY
     Route: 048
  3. LISINOPRIL-HYDROCHLOROTHIAZIDE [Concomitant]
     Active Substance: HYDROCHLOROTHIAZIDE\LISINOPRIL
     Dosage: UNK UNK, DAILY
     Route: 048
  4. DEXTRAN 70/HYPROMELLOSE [Concomitant]
     Dosage: UNK UNK, 3X/DAY(APPLY 1-2 DROPS TP EYE )
  5. NORCO [Concomitant]
     Active Substance: ACETAMINOPHEN\HYDROCODONE BITARTRATE
     Indication: PAIN
     Dosage: UNK UNK, AS NEEDED(1 TABLET  BY MOUTH EVERY 6(SIX) HOURS )
     Route: 048
  6. INSULIN NPH [INSULIN ISOPHANE PORCINE] [Concomitant]
     Dosage: 50 IU, 2X/DAY
     Route: 058
  7. PRAVACHOL [Concomitant]
     Active Substance: PRAVASTATIN SODIUM
     Dosage: 20 MG, DAILY
     Route: 048
  8. LIORESAL [Concomitant]
     Active Substance: BACLOFEN
     Indication: BLOOD GLUCOSE ABNORMAL
     Dosage: UNK UNK, 3X/DAY (1BOTTLE BY FINGER STICK ROUTE )
  9. NEURONTIN [Suspect]
     Active Substance: GABAPENTIN
     Dosage: 300 MG, 2X/DAY
     Route: 048
  10. INSULIN REGULAR HM [Concomitant]
     Active Substance: INSULIN NOS
     Dosage: 50 IU, 2X/DAY
  11. LOPRESSOR [Concomitant]
     Active Substance: METOPROLOL TARTRATE
     Dosage: 50 MG, 2X/DAY
     Route: 048
  12. DELTASONE [PREDNISONE] [Concomitant]
     Dosage: UNK(2TABS/ DAY FOR 7 DAYS, THEN 1TAB/DAY UNTIL GONE)
  13. LASIX [Concomitant]
     Active Substance: FUROSEMIDE
     Dosage: 40 MG, DAILY
     Route: 048
  14. PRILOSEC [Concomitant]
     Active Substance: OMEPRAZOLE MAGNESIUM
     Dosage: 40 MG, DAILY
     Route: 048

REACTIONS (2)
  - Headache [Unknown]
  - Gastrooesophageal reflux disease [Unknown]
